FAERS Safety Report 10231799 (Version 1)
Quarter: 2014Q2

REPORT INFORMATION
  Report Type: Report from Study
  Country: EE (occurrence: EE)
  Receive Date: 20140612
  Receipt Date: 20140612
  Transmission Date: 20141212
  Serious: Yes (Hospitalization)
  Sender: FDA-Public Use
  Company Number: EE-ROCHE-1416522

PATIENT
  Age: 62 Year
  Sex: Female
  Weight: 101 kg

DRUGS (5)
  1. PEGASYS [Suspect]
     Indication: CHRONIC HEPATITIS C
     Dosage: 180}135 MCG PER WEEK
     Route: 058
     Dates: start: 20110302, end: 20110909
  2. COPEGUS [Suspect]
     Indication: CHRONIC HEPATITIS C
     Dosage: 1200}1000}800}600 MG/DAY
     Route: 048
     Dates: start: 20110302, end: 20110909
  3. AMLODIPIN [Concomitant]
     Route: 065
  4. RAMIPRIL [Concomitant]
     Route: 065
  5. SPIRONOLACTON [Concomitant]
     Route: 065

REACTIONS (2)
  - Pancytopenia [Recovered/Resolved]
  - Hepatic cirrhosis [Recovered/Resolved]
